FAERS Safety Report 19772447 (Version 2)
Quarter: 2021Q3

REPORT INFORMATION
  Report Type: Spontaneous
  Country: FR (occurrence: FR)
  Receive Date: 20210831
  Receipt Date: 20210831
  Transmission Date: 20211014
  Serious: Yes (Other)
  Sender: FDA-Public Use
  Company Number: NVSC2021FR191637

PATIENT
  Age: 24 Year
  Sex: Female
  Weight: 60 kg

DRUGS (2)
  1. RITALINE [Suspect]
     Active Substance: METHYLPHENIDATE HYDROCHLORIDE
     Indication: HYPERSOMNIA
     Dosage: 20 MG, QD (10MG 1CP MATIN ET 1CP MIDI)
     Route: 048
     Dates: start: 20201012, end: 20210503
  2. RITALINE L.P. [Suspect]
     Active Substance: METHYLPHENIDATE HYDROCHLORIDE
     Indication: HYPERSOMNIA
     Dosage: 40 MG, QD (20MG LP 1CP MATIN ET 1CP MIDI)
     Route: 048
     Dates: start: 20201012, end: 20210503

REACTIONS (1)
  - Acne [Recovered/Resolved with Sequelae]

NARRATIVE: CASE EVENT DATE: 20201030
